FAERS Safety Report 14988530 (Version 1)
Quarter: 2018Q2

REPORT INFORMATION
  Report Type: Spontaneous
  Country: US (occurrence: US)
  Receive Date: 20180608
  Receipt Date: 20180608
  Transmission Date: 20180711
  Serious: No
  Sender: FDA-Public Use
  Company Number: US-GALDERMA-US17012953

PATIENT
  Age: 23 Year
  Sex: Female

DRUGS (10)
  1. PROACTIV SOLUTION DAILY PROTECTION PLUS SUNSCREEN SPF 30 [Suspect]
     Active Substance: AVOBENZONE\HOMOSALATE\OCTINOXATE\OCTISALATE\OXYBENZONE
     Indication: SKIN IRRITATION
     Route: 061
     Dates: start: 20170918, end: 20170922
  2. PROACTIV MD BALANCING TONER [Concomitant]
     Active Substance: COSMETICS
     Indication: SKIN IRRITATION
     Route: 061
     Dates: start: 20170918, end: 20170922
  3. PROACTIV MD BALANCING TONER [Concomitant]
     Active Substance: COSMETICS
     Indication: ACNE
  4. PROACTIV SKIN PURIFYING MASK [Concomitant]
     Active Substance: SULFUR
     Indication: SKIN IRRITATION
     Route: 061
     Dates: start: 20170918, end: 20170922
  5. PROACTIV MD ADAPALENE ACNE TREATMENT [Suspect]
     Active Substance: ADAPALENE
     Indication: SKIN IRRITATION
  6. PROACTIV SKIN PURIFYING MASK [Concomitant]
     Active Substance: SULFUR
     Indication: ACNE
  7. PROACTIV MD DEEP CLEANSING FACE WASH [Concomitant]
     Active Substance: COSMETICS
     Indication: SKIN IRRITATION
     Route: 061
     Dates: start: 20170918, end: 20170922
  8. PROACTIV MD ADAPALENE ACNE TREATMENT [Suspect]
     Active Substance: ADAPALENE
     Indication: ACNE
     Dosage: 0.1%
     Route: 061
     Dates: start: 20170918, end: 20170922
  9. PROACTIV SOLUTION DAILY PROTECTION PLUS SUNSCREEN SPF 30 [Suspect]
     Active Substance: AVOBENZONE\HOMOSALATE\OCTINOXATE\OCTISALATE\OXYBENZONE
     Indication: ACNE
  10. PROACTIV MD DEEP CLEANSING FACE WASH [Concomitant]
     Active Substance: COSMETICS
     Indication: ACNE

REACTIONS (3)
  - Rash papular [Not Recovered/Not Resolved]
  - Erythema [Not Recovered/Not Resolved]
  - Product use in unapproved indication [Not Recovered/Not Resolved]

NARRATIVE: CASE EVENT DATE: 20170920
